FAERS Safety Report 22400077 (Version 1)
Quarter: 2023Q2

REPORT INFORMATION
  Report Type: Spontaneous
  Country: US (occurrence: US)
  Receive Date: 20230602
  Receipt Date: 20230602
  Transmission Date: 20230721
  Serious: Yes (Other)
  Sender: FDA-Public Use
  Company Number: US-MALLINCKRODT-MNK202302102

PATIENT
  Age: 46 Year
  Sex: Female

DRUGS (3)
  1. AMITIZA [Suspect]
     Active Substance: LUBIPROSTONE
     Indication: Distal intestinal obstruction syndrome
     Dosage: UNK,  VIA NASOGASTRIC TUBE
  2. POLYETHYLENE GLYCOL [Concomitant]
     Active Substance: POLYETHYLENE GLYCOL
     Indication: Distal intestinal obstruction syndrome
     Dosage: UNKNOWN
  3. ACETYLCYSTEINE [Concomitant]
     Active Substance: ACETYLCYSTEINE
     Indication: Distal intestinal obstruction syndrome
     Dosage: UNK

REACTIONS (3)
  - Distal intestinal obstruction syndrome [Recovering/Resolving]
  - Therapy non-responder [Unknown]
  - Incorrect route of product administration [Unknown]
